FAERS Safety Report 10147791 (Version 2)
Quarter: 2014Q2

REPORT INFORMATION
  Report Type: Spontaneous
  Country: US (occurrence: US)
  Receive Date: 20140501
  Receipt Date: 20140516
  Transmission Date: 20141212
  Serious: Yes (Other)
  Sender: FDA-Public Use
  Company Number: US-AMGEN-USASP2014024353

PATIENT
  Age: 33 Year
  Sex: Female

DRUGS (10)
  1. ENBREL [Suspect]
     Indication: PSORIATIC ARTHROPATHY
     Dosage: 50 MG, QWK
     Route: 058
     Dates: start: 20140402
  2. ENBREL [Suspect]
     Indication: PSORIASIS
  3. LEVOTHYROXINE [Concomitant]
     Indication: THYROID DISORDER
     Dosage: 100 MUG, QD
     Route: 048
     Dates: start: 20100505
  4. LABETALOL [Concomitant]
     Indication: HYPERTENSION
     Dosage: 100 MG, BID
     Route: 048
     Dates: start: 20100505
  5. SERTRALINE [Concomitant]
     Indication: DEPRESSION
     Dosage: 50 MG, QD
     Route: 048
     Dates: start: 20140301
  6. ALPRAZOLAM [Concomitant]
     Indication: ANXIETY
     Dosage: 0.50 MG, BID
     Route: 048
     Dates: start: 20140301
  7. OXYCODONE [Concomitant]
     Indication: PSORIATIC ARTHROPATHY
     Dosage: 5 MG, BID
     Route: 048
     Dates: start: 20140410
  8. OXYCODONE [Concomitant]
     Indication: PAIN
  9. VITAMIN D                          /00107901/ [Concomitant]
  10. VITAMIN C                          /00008001/ [Concomitant]
     Dosage: UNK

REACTIONS (6)
  - Psoriatic arthropathy [Unknown]
  - Headache [Unknown]
  - Anxiety [Unknown]
  - Stress [Unknown]
  - Pain [Unknown]
  - Psoriasis [Unknown]
